FAERS Safety Report 6146386-1 (Version None)
Quarter: 2009Q2

REPORT INFORMATION
  Report Type: 
  Country: None (occurrence: None)
  Receive Date: 20090407
  Receipt Date: 20090402
  Transmission Date: 20091009
  Serious: Yes (Other)
  Sender: FDA-Public Use
  Company Number: US-BRISTOL-MYERS SQUIBB COMPANY-14539597

PATIENT
  Age: 39 Year
  Sex: Female
  Weight: 100 kg

DRUGS (20)
  1. ABILIFY [Suspect]
     Indication: DEPRESSION
     Dosage: QAM
     Route: 048
     Dates: start: 20081218, end: 20090319
  2. ACCOLATE [Concomitant]
  3. ADVAIR HFA [Concomitant]
  4. ALBUTEROL [Concomitant]
  5. ARIXTRA [Concomitant]
  6. ASPIRIN [Concomitant]
  7. CLARINEX [Concomitant]
  8. DIAZEPAM [Concomitant]
  9. LEVOTHYROXINE SODIUM [Concomitant]
  10. LIPITOR [Concomitant]
  11. LYRICA [Concomitant]
  12. REGLAN [Concomitant]
  13. PAXIL [Concomitant]
     Dosage: 1DF=40 (UNITS NOT SPECIFIED)
  14. POTASSIUM CHLORIDE [Concomitant]
  15. PROVIGIL [Concomitant]
  16. SPIRONOLACTONE [Concomitant]
  17. TOPAMAX [Concomitant]
  18. TRENTAL [Concomitant]
  19. OMEPRAZOLE [Concomitant]
  20. VALIUM [Concomitant]
     Dosage: 1DF=10 (UNITS NOT SPECIFIED)

REACTIONS (5)
  - AMNESIA [None]
  - ANGER [None]
  - ATRIAL FIBRILLATION [None]
  - IRRITABILITY [None]
  - SPEECH DISORDER [None]
